FAERS Safety Report 14924251 (Version 2)
Quarter: 2018Q4

REPORT INFORMATION
  Report Type: Spontaneous
  Country: US (occurrence: US)
  Receive Date: 20180522
  Receipt Date: 20181031
  Transmission Date: 20190204
  Serious: Yes (Other)
  Sender: FDA-Public Use
  Company Number: US-PFIZER INC-2018207857

PATIENT
  Age: 91 Year
  Sex: Female

DRUGS (6)
  1. GENTAMICIN. [Concomitant]
     Active Substance: GENTAMICIN
     Dosage: UNK
     Route: 061
  2. RESTASIS [Suspect]
     Active Substance: CYCLOSPORINE
     Dosage: UNK
  3. VALACYCLOVIR [Concomitant]
     Active Substance: VALACYCLOVIR HYDROCHLORIDE
     Dosage: 500 MG, UNK
  4. XELJANZ XR [Suspect]
     Active Substance: TOFACITINIB CITRATE
     Dosage: 11 MG, DAILY
     Route: 048
  5. DOXYCYCLINE MONOHYDRATE [Concomitant]
     Active Substance: DOXYCYCLINE
     Dosage: 100 MG, UNK
  6. ZIRGAN [Concomitant]
     Active Substance: GANCICLOVIR
     Dosage: UNK

REACTIONS (5)
  - Polymyalgia rheumatica [Unknown]
  - Inflammatory marker increased [Unknown]
  - Musculoskeletal stiffness [Unknown]
  - Pain in extremity [Unknown]
  - Contraindicated product prescribed [Unknown]
